FAERS Safety Report 4317293-1 (Version None)
Quarter: 2004Q1

REPORT INFORMATION
  Report Type: 
  Country: None (occurrence: None)
  Receive Date: 20040312
  Receipt Date: 20040302
  Transmission Date: 20041129
  Serious: Yes (Other)
  Sender: FDA-Public Use
  Company Number: 2004011422

PATIENT
  Age: 63 Year
  Sex: Male

DRUGS (10)
  1. DIFLUCAN [Suspect]
     Indication: INFECTION
     Dosage: 200 MG (DAILY), INTRAVENOUS
     Route: 042
     Dates: start: 20040204, end: 20040214
  2. MEROPENEM (MEROPENEM) [Suspect]
     Indication: INFECTION
     Dosage: 0.5 GRAM (DAILY), INTRAVENOUS
     Route: 042
     Dates: start: 20040124, end: 20040204
  3. HICALIQ (GLUCOSE, POTASSIUM ACETATE, CALCIUM GLUCONATE, MAGNESIUM SULF [Concomitant]
  4. KIDMIN (AMINO ACIDS NOS) [Concomitant]
  5. POTASSIUM PHOSPHATE (POTASSIUM PHOSPHATE) [Concomitant]
  6. ELEMENMIC (MINERALS NOS) [Concomitant]
  7. SOHVITA (VITAMINS NOS) [Concomitant]
  8. CIMETIDINE [Concomitant]
  9. OMEPRAZOLE [Concomitant]
  10. IMMUNE GLOBULIN INTRAVENOUS (HUMAN) [Concomitant]

REACTIONS (3)
  - CONVULSION [None]
  - DEPRESSED LEVEL OF CONSCIOUSNESS [None]
  - DRUG INEFFECTIVE [None]
